FAERS Safety Report 4335212-9 (Version None)
Quarter: 2004Q1

REPORT INFORMATION
  Report Type: 
  Country: None (occurrence: None)
  Receive Date: 20040329
  Receipt Date: 20040112
  Transmission Date: 20041129
  Serious: No
  Sender: FDA-Public Use
  Company Number: 03P-163-0241491-00

PATIENT
  Age: 68 Year
  Sex: Male
  Weight: 89.8122 kg

DRUGS (15)
  1. HUMIRA [Suspect]
     Indication: RHEUMATOID ARTHRITIS
     Dosage: 40 MG, 1 IN 2 WK, SUBCUTANEOUS
     Route: 058
     Dates: start: 20031018, end: 20040112
  2. METHOTREXATE [Concomitant]
  3. PREDNISONE [Concomitant]
  4. ENALAPRIL MALEATE [Concomitant]
  5. CARVEDILOL [Concomitant]
  6. WARFARIN SODIUM [Concomitant]
  7. DIGOXIN [Concomitant]
  8. OMEPRAZOLE [Concomitant]
  9. SIMVASTATIN [Concomitant]
  10. CALCIUM [Concomitant]
  11. ASPIRIN [Concomitant]
  12. CALCIUM WITH VITAMIN D [Concomitant]
  13. MULTIVITAMIN [Concomitant]
  14. TOCOPHEROL CONCENTRATE CAP [Concomitant]
  15. FOLIC ACID [Concomitant]

REACTIONS (3)
  - DRUG EFFECT DECREASED [None]
  - DRUG INEFFECTIVE [None]
  - PAIN [None]
